FAERS Safety Report 6350465 (Version 3)
Quarter: 2013Q1

REPORT INFORMATION
  Report Type: Spontaneous
  Country: GB (occurrence: GB)
  Receive Date: 20070706
  Receipt Date: 20130322
  Transmission Date: 20140127
  Serious: Yes (Other)
  Sender: FDA-Public Use
  Company Number: GB-RB-007123-07

PATIENT
  Age: 23 Year
  Sex: Female

DRUGS (2)
  1. SUBUTEX [Suspect]
     Route: 060
     Dates: start: 20070611, end: 20070616
  2. SUBUTEX [Suspect]
     Indication: DRUG WITHDRAWAL MAINTENANCE THERAPY
     Route: 060
     Dates: start: 20070617

REACTIONS (3)
  - Amniorrhoea [Unknown]
  - Exposure during pregnancy [Recovered/Resolved]
  - Underdose [Unknown]
